FAERS Safety Report 5023320-9 (Version None)
Quarter: 2006Q2

REPORT INFORMATION
  Report Type: 
  Country: None (occurrence: None)
  Receive Date: 20060612
  Receipt Date: 20060602
  Transmission Date: 20061013
  Serious: Yes (Other)
  Sender: FDA-Public Use
  Company Number: US-AVENTIS-200614889US

PATIENT
  Sex: Female

DRUGS (3)
  1. ALLEGRA [Suspect]
     Dosage: DOSE: UNKNOWN
     Dates: start: 20060101
  2. WELLBUTRIN [Suspect]
     Route: 048
     Dates: start: 20060201, end: 20060425
  3. CONCERTA [Concomitant]
     Dosage: DOSE: UNKNOWN
     Dates: start: 20050328, end: 20060425

REACTIONS (3)
  - AMNESIA [None]
  - CONVULSION [None]
  - POSTICTAL STATE [None]
